FAERS Safety Report 14605693 (Version 1)
Quarter: 2018Q1

REPORT INFORMATION
  Report Type: Other
  Country: US (occurrence: US)
  Receive Date: 20180306
  Receipt Date: 20180306
  Transmission Date: 20180509
  Serious: No
  Sender: FDA-Public Use
  Company Number: US-INTERCEPT-PMOCA2018000277

PATIENT

DRUGS (1)
  1. OCALIVA [Suspect]
     Active Substance: OBETICHOLIC ACID
     Indication: PRIMARY BILIARY CHOLANGITIS
     Dosage: 5 MG, QD
     Route: 048
     Dates: start: 20180101, end: 20180212

REACTIONS (5)
  - Ocular icterus [Unknown]
  - Contusion [Unknown]
  - Hypersensitivity [Unknown]
  - Dry skin [Unknown]
  - Pruritus [Unknown]
